FAERS Safety Report 13017179 (Version 2)
Quarter: 2017Q1

REPORT INFORMATION
  Report Type: Spontaneous
  Country: US (occurrence: US)
  Receive Date: 20161212
  Receipt Date: 20170123
  Transmission Date: 20170428
  Serious: Yes (Hospitalization)
  Sender: FDA-Public Use
  Company Number: US-UNITED THERAPEUTICS-UNT-2016-017899

PATIENT
  Age: 66 Year
  Sex: Male
  Weight: 102.4 kg

DRUGS (2)
  1. REMODULIN [Suspect]
     Active Substance: TREPROSTINIL
     Indication: PULMONARY HYPERTENSION
     Dosage: 0.0865 ?G/KG, CONTINUING
     Route: 041
     Dates: start: 20160126
  2. LETAIRIS [Concomitant]
     Active Substance: AMBRISENTAN
     Indication: PRODUCT USED FOR UNKNOWN INDICATION

REACTIONS (3)
  - Coronary artery disease [Unknown]
  - Atrial fibrillation [Unknown]
  - Chest pain [Unknown]

NARRATIVE: CASE EVENT DATE: 20161117
